FAERS Safety Report 9398962 (Version 1)
Quarter: 2013Q3

REPORT INFORMATION
  Report Type: Spontaneous
  Country: GB (occurrence: GB)
  Receive Date: 20130712
  Receipt Date: 20130712
  Transmission Date: 20140515
  Serious: Yes (Hospitalization, Other)
  Sender: FDA-Public Use
  Company Number: GB-VERTEX PHARMACEUTICALS INC-2013-007916

PATIENT
  Age: 57 Year
  Sex: Male

DRUGS (5)
  1. INCIVO [Suspect]
     Indication: PRODUCT USED FOR UNKNOWN INDICATION
     Route: 048
     Dates: start: 201109
  2. LISINOPRIL [Interacting]
     Indication: HYPERTENSION
     Route: 048
  3. PEG-INTERFERON [Concomitant]
     Indication: PRODUCT USED FOR UNKNOWN INDICATION
     Route: 048
     Dates: start: 201109
  4. RIBAVIRIN [Concomitant]
     Indication: PRODUCT USED FOR UNKNOWN INDICATION
     Dosage: UNK
     Route: 048
     Dates: start: 201109
  5. RIBAVIRIN [Concomitant]
     Dosage: 600 MG, BID
     Route: 048

REACTIONS (5)
  - Renal impairment [Unknown]
  - Dehydration [Unknown]
  - Drug interaction [Unknown]
  - Anaemia [Unknown]
  - Condition aggravated [Unknown]
